FAERS Safety Report 8471508-7 (Version None)
Quarter: 2012Q2

REPORT INFORMATION
  Report Type: 
  Country: None (occurrence: None)
  Receive Date: 20120627
  Receipt Date: 20120622
  Transmission Date: 20120825
  Serious: Yes (Hospitalization, Other)
  Sender: FDA-Public Use
  Company Number: PHHY2010JP76526

PATIENT
  Sex: Male
  Weight: 57 kg

DRUGS (4)
  1. AFINITOR [Suspect]
     Indication: METASTATIC RENAL CELL CARCINOMA
     Dosage: 10 MG DAILY
     Route: 048
     Dates: start: 20100811, end: 20100929
  2. AFINITOR [Suspect]
     Dosage: 5 MG, DAILY
     Route: 048
     Dates: start: 20110309, end: 20110727
  3. LOXOPROFEN [Concomitant]
     Indication: METASTATIC RENAL CELL CARCINOMA
     Dosage: 60 MG, UNK
     Route: 048
     Dates: start: 20100908, end: 20101013
  4. REBAMIPIDE [Concomitant]
     Indication: METASTATIC RENAL CELL CARCINOMA
     Dosage: 100 MG, UNK
     Route: 048
     Dates: start: 20100908, end: 20101013

REACTIONS (23)
  - WEIGHT INCREASED [None]
  - PULMONARY OEDEMA [None]
  - BLOOD ALKALINE PHOSPHATASE INCREASED [None]
  - CARDIOMEGALY [None]
  - EJECTION FRACTION DECREASED [None]
  - GENERALISED OEDEMA [None]
  - OEDEMA PERIPHERAL [None]
  - DEHYDRATION [None]
  - URINE OUTPUT DECREASED [None]
  - ANAEMIA [None]
  - LYMPHOCYTE COUNT DECREASED [None]
  - DYSPNOEA [None]
  - RIGHT ATRIAL DILATATION [None]
  - INFERIOR VENA CAVA DILATATION [None]
  - ELECTROCARDIOGRAM T WAVE ABNORMAL [None]
  - GAIT DISTURBANCE [None]
  - HEPATITIS FULMINANT [None]
  - CARDIAC FAILURE ACUTE [None]
  - PLEURAL EFFUSION [None]
  - LUNG DISORDER [None]
  - ORTHOPNOEA [None]
  - RENAL FAILURE ACUTE [None]
  - FATIGUE [None]
